FAERS Safety Report 7038565-6 (Version None)
Quarter: 2010Q4

REPORT INFORMATION
  Report Type: 
  Country: None (occurrence: None)
  Receive Date: 20101011
  Receipt Date: 20100727
  Transmission Date: 20110411
  Serious: Yes (Life-Threatening, Hospitalization)
  Sender: FDA-Public Use
  Company Number: US-PFIZER INC-2007029010

PATIENT
  Sex: Female

DRUGS (2)
  1. NEURONTIN [Suspect]
     Indication: NECK PAIN
     Dosage: 600 MG, 3X/DAY
     Dates: start: 20030301, end: 20040704
  2. NEURONTIN [Suspect]
     Indication: BACK PAIN
     Dosage: UNK
     Dates: start: 20040721

REACTIONS (3)
  - DRUG INEFFECTIVE FOR UNAPPROVED INDICATION [None]
  - OVERDOSE [None]
  - SUICIDE ATTEMPT [None]
